FAERS Safety Report 7388020-9 (Version None)
Quarter: 2011Q1

REPORT INFORMATION
  Report Type: 
  Country: None (occurrence: None)
  Receive Date: 20110322
  Receipt Date: 20100930
  Transmission Date: 20110831
  Serious: Yes (Other)
  Sender: FDA-Public Use
  Company Number: 028468

PATIENT
  Sex: Male

DRUGS (1)
  1. CERTOLIZUMAB PEGOL (CERTOLIZAUMAB PEGOL) [Suspect]
     Indication: RHEUMATOID ARTHRITIS
     Dosage: SEE IMAGE
     Route: 058
     Dates: start: 20090907

REACTIONS (1)
  - NECROSIS [None]
